FAERS Safety Report 13663870 (Version 1)
Quarter: 2017Q2

REPORT INFORMATION
  Report Type: Spontaneous
  Country: US (occurrence: US)
  Receive Date: 20170619
  Receipt Date: 20170619
  Transmission Date: 20170830
  Serious: No
  Sender: FDA-Public Use
  Company Number: US-PFIZER INC-2017230518

PATIENT
  Age: 52 Year
  Sex: Male

DRUGS (18)
  1. ZOLOFT [Concomitant]
     Active Substance: SERTRALINE HYDROCHLORIDE
     Dosage: 100 MG, DAILY
     Dates: start: 20170309
  2. CRESTOR [Concomitant]
     Active Substance: ROSUVASTATIN CALCIUM
     Indication: DYSLIPIDAEMIA
     Dosage: 10 MG, DAILY
     Route: 048
  3. SYNTHROID [Concomitant]
     Active Substance: LEVOTHYROXINE SODIUM
     Dosage: 75 UG, 1X/DAY, (1 (ONE) TABLET IN THE AM)
     Dates: start: 20170223
  4. ATORVASTATIN CALCIUM. [Concomitant]
     Active Substance: ATORVASTATIN CALCIUM
     Indication: DYSLIPIDAEMIA
     Dosage: 10 MG, 1X/DAY, (1 (ONE) TABLET QHS)
     Dates: start: 20170310
  5. ATIVAN [Concomitant]
     Active Substance: LORAZEPAM
     Indication: DEPRESSION
  6. COREG [Concomitant]
     Active Substance: CARVEDILOL
     Dosage: 3.125 MG, 2X/DAY, (1 (ONE) TABLET TWO TIMES DAILY)
     Dates: start: 20170515
  7. VIMPAT [Concomitant]
     Active Substance: LACOSAMIDE
     Dosage: 200 MG, 2X/DAY, (1 (ONE) TABLET TWO TIMES DAILY)
     Dates: start: 20170517
  8. VITAMIN D [Concomitant]
     Active Substance: CHOLECALCIFEROL
     Indication: VITAMIN D DEFICIENCY
     Dosage: 2000 IU, DAILY
     Dates: start: 20170310
  9. CLONAZEPAM. [Concomitant]
     Active Substance: CLONAZEPAM
     Indication: ANXIETY
     Dosage: 0.5 MG, AS NEEDED, (1 (ONE) TABLET TWO TIMES DAILY, AS NEEDED)
     Dates: start: 20170309
  10. ATIVAN [Concomitant]
     Active Substance: LORAZEPAM
     Indication: ANXIETY
     Dosage: 0.5 MG, 2X/DAY, (1 (ONE) TABLET TWO TIMES DAILY)
     Dates: start: 20170511
  11. FLUCONAZOLE. [Concomitant]
     Active Substance: FLUCONAZOLE
     Dosage: 100 MG, DAILY
     Route: 048
  12. TAMSULOSIN HCL [Concomitant]
     Active Substance: TAMSULOSIN
     Dosage: 0.4 MG, DAILY
     Route: 048
  13. CLONAZEPAM. [Concomitant]
     Active Substance: CLONAZEPAM
     Indication: DEPRESSION
  14. LISINOPRIL. [Concomitant]
     Active Substance: LISINOPRIL
     Dosage: 2.5 MG, DAILY
     Route: 048
  15. ONDANSETRON [Concomitant]
     Active Substance: ONDANSETRON
     Dosage: 4 MG, AS NEEDED, (1 EVERY EIGHT HOURS, AS NEEDED)
     Route: 048
  16. LYRICA [Suspect]
     Active Substance: PREGABALIN
     Indication: TOXIC NEUROPATHY
     Dosage: 200 MG, 3X/DAY
     Route: 048
     Dates: start: 20170517
  17. ESGIC [Concomitant]
     Active Substance: ACETAMINOPHEN\BUTALBITAL\CAFFEINE
     Indication: HEADACHE
     Dosage: 1 DF, AS NEEDED, ([BUTALBITAL-50 MG]/[CAFFEINE-40 MG]/[PARACETAMOL-325 MG]) (DAILY AS NEEDED)
     Dates: start: 20170515
  18. ASPIRIN. [Concomitant]
     Active Substance: ASPIRIN
     Dosage: 81 MG, DAILY
     Route: 048

REACTIONS (4)
  - Product use in unapproved indication [Unknown]
  - Feeling drunk [Unknown]
  - Gait disturbance [Unknown]
  - Dysarthria [Unknown]
